FAERS Safety Report 24926273 (Version 1)
Quarter: 2025Q1

REPORT INFORMATION
  Report Type: Other
  Country: NO (occurrence: NO)
  Receive Date: 20250205
  Receipt Date: 20250205
  Transmission Date: 20250408
  Serious: Yes (Hospitalization, Other)
  Sender: DENTSPLY
  Company Number: NO-DENTSPLY-2025SCDP000026

PATIENT
  Age: 41 Year
  Sex: Female

DRUGS (2)
  1. XYLOCAINE [Suspect]
     Active Substance: LIDOCAINE HYDROCHLORIDE
     Indication: Bronchoscopy
     Route: 003
     Dates: start: 20250109
  2. TETRACAINE [Suspect]
     Active Substance: TETRACAINE
     Indication: Bronchoscopy
     Route: 062
     Dates: start: 20250109

REACTIONS (2)
  - Muscle spasms [Recovered/Resolved]
  - Loss of consciousness [Recovered/Resolved]

NARRATIVE: CASE EVENT DATE: 20250109
